FAERS Safety Report 25148031 (Version 1)
Quarter: 2025Q2

REPORT INFORMATION
  Report Type: Report from Study
  Country: US (occurrence: US)
  Receive Date: 20250402
  Receipt Date: 20250402
  Transmission Date: 20250716
  Serious: Yes (Other)
  Sender: ALEXION PHARMACEUTICALS
  Company Number: US-ASTRAZENECA-202405USA002416US

PATIENT
  Age: 72 Year
  Weight: 82.086 kg

DRUGS (9)
  1. TEZEPELUMAB [Suspect]
     Active Substance: TEZEPELUMAB
     Indication: Product used for unknown indication
     Dosage: 210 MILLIGRAM, Q4W
  2. TEZEPELUMAB [Suspect]
     Active Substance: TEZEPELUMAB
     Dosage: 210 MILLIGRAM, Q4W
  3. TEZEPELUMAB [Suspect]
     Active Substance: TEZEPELUMAB
  4. TEZEPELUMAB [Suspect]
     Active Substance: TEZEPELUMAB
  5. TEZEPELUMAB [Suspect]
     Active Substance: TEZEPELUMAB
  6. TEZEPELUMAB [Suspect]
     Active Substance: TEZEPELUMAB
  7. TEZEPELUMAB [Suspect]
     Active Substance: TEZEPELUMAB
  8. FLUAD NOS [Suspect]
     Active Substance: INFLUENZA VIRUS VACCINE
     Indication: Prophylaxis
  9. COVID-19 VACCINE NOS [Suspect]
     Active Substance: COVID-19 VACCINE
     Indication: Prophylaxis

REACTIONS (2)
  - Alopecia [Recovered/Resolved]
  - Dizziness [Unknown]
